FAERS Safety Report 13354462 (Version 1)
Quarter: 2017Q1

REPORT INFORMATION
  Report Type: Spontaneous
  Country: US (occurrence: US)
  Receive Date: 20170321
  Receipt Date: 20170321
  Transmission Date: 20170429
  Serious: No
  Sender: FDA-Public Use
  Company Number: US-WARNER CHILCOTT, LLC-1064450

PATIENT
  Sex: Male

DRUGS (2)
  1. DELZICOL [Suspect]
     Active Substance: MESALAMINE
     Route: 048
  2. DELZICOL [Suspect]
     Active Substance: MESALAMINE
     Route: 048

REACTIONS (3)
  - Wrong technique in product usage process [Unknown]
  - Irritability [Unknown]
  - Abdominal distension [Unknown]
